FAERS Safety Report 4381811-8 (Version None)
Quarter: 2004Q2

REPORT INFORMATION
  Report Type: 
  Country: None (occurrence: None)
  Receive Date: 20040603
  Receipt Date: 20030624
  Transmission Date: 20050107
  Serious: Yes (Hospitalization)
  Sender: FDA-Public Use
  Company Number: 200315862US

PATIENT
  Age: 50 Year
  Sex: Male

DRUGS (2)
  1. LOVENOX [Suspect]
  2. HEPARIN [Concomitant]

REACTIONS (5)
  - DYSPNOEA [None]
  - HAEMATOMA [None]
  - PAIN [None]
  - PULMONARY EMBOLISM [None]
  - SWELLING [None]
